FAERS Safety Report 7091843-7 (Version None)
Quarter: 2010Q4

REPORT INFORMATION
  Report Type: 
  Country: None (occurrence: None)
  Receive Date: 20101109
  Receipt Date: 20101027
  Transmission Date: 20110411
  Serious: Yes (Life-Threatening, Hospitalization)
  Sender: FDA-Public Use
  Company Number: IT-ELI_LILLY_AND_COMPANY-IT201010006626

PATIENT
  Sex: Male

DRUGS (6)
  1. ZYPREXA [Suspect]
     Indication: DEPRESSION
     Dosage: 10 MG, DAILY (1/D)
     Route: 048
     Dates: start: 20100801, end: 20101004
  2. CIPRALEX [Concomitant]
     Indication: DEPRESSION
     Dosage: 15 MG, DAILY (1/D)
     Route: 048
     Dates: start: 20100901, end: 20101004
  3. CARBOLITHIUM [Concomitant]
     Indication: DEPRESSION
     Dates: start: 19900101, end: 20081001
  4. CARBOLITHIUM [Concomitant]
     Dosage: 900 MG, DAILY (1/D)
     Route: 048
     Dates: start: 20081001, end: 20101004
  5. LORAZEPAM [Concomitant]
     Dosage: 2.5 MG, 1 DF
  6. LANSOPRAZOLE [Concomitant]

REACTIONS (5)
  - DEPRESSED LEVEL OF CONSCIOUSNESS [None]
  - MUSCLE RIGIDITY [None]
  - OFF LABEL USE [None]
  - RHABDOMYOLYSIS [None]
  - TREMOR [None]
